FAERS Safety Report 7390548-2 (Version None)
Quarter: 2011Q2

REPORT INFORMATION
  Report Type: 
  Country: None (occurrence: None)
  Receive Date: 20110403
  Receipt Date: 20110329
  Transmission Date: 20111010
  Serious: Yes (Death, Hospitalization, Other)
  Sender: FDA-Public Use
  Company Number: US-BRISTOL-MYERS SQUIBB COMPANY-14261671

PATIENT
  Age: 31 Year
  Sex: Male
  Weight: 113 kg

DRUGS (3)
  1. ABILIFY [Suspect]
     Indication: DEPRESSION
     Dates: start: 20050101, end: 20070101
  2. ABILIFY [Suspect]
     Indication: BIPOLAR DISORDER
     Dates: start: 20050101, end: 20070101
  3. WELLBUTRIN [Suspect]

REACTIONS (5)
  - WEIGHT INCREASED [None]
  - CONJUNCTIVITIS [None]
  - MYOCARDIAL INFARCTION [None]
  - HYPERTENSIVE HEART DISEASE [None]
  - PILONIDAL CYST [None]
